FAERS Safety Report 6561626-2 (Version None)
Quarter: 2010Q1

REPORT INFORMATION
  Report Type: 
  Country: None (occurrence: None)
  Receive Date: 20100130
  Receipt Date: 20091026
  Transmission Date: 20100710
  Serious: Yes (Other)
  Sender: FDA-Public Use
  Company Number: US-ABBOTT-09P-163-0605104-00

PATIENT
  Sex: Male
  Weight: 98.518 kg

DRUGS (10)
  1. HUMIRA [Suspect]
     Indication: RHEUMATOID ARTHRITIS
     Route: 058
     Dates: start: 20050101
  2. ATENOLOL [Suspect]
     Indication: HYPERTENSION
     Dates: start: 20070101, end: 20070801
  3. TRIAMTERENE AND HYDROCHLOROTHIAZIDE [Concomitant]
     Indication: BLOOD PRESSURE
     Dates: end: 20070101
  4. TRIAMTERENE AND HYDROCHLOROTHIAZIDE [Concomitant]
     Dosage: LOWERED DOSE
     Dates: start: 20070101, end: 20090801
  5. TRIAMTERENE AND HYDROCHLOROTHIAZIDE [Concomitant]
     Dates: start: 20090801
  6. FLOMAX [Concomitant]
     Indication: PROSTATIC DISORDER
     Dates: start: 20080101, end: 20090801
  7. FINASTERIDE [Concomitant]
     Indication: PROSTATIC DISORDER
     Dates: start: 20080101
  8. METHOTREXATE [Concomitant]
     Indication: RHEUMATOID ARTHRITIS
  9. FOLIC ACID [Concomitant]
     Indication: RHEUMATOID ARTHRITIS
  10. ALLERGY SPRAY [Concomitant]
     Indication: DRUG USE FOR UNKNOWN INDICATION

REACTIONS (7)
  - AMNESIA [None]
  - CARDIAC ARREST [None]
  - DIZZINESS [None]
  - FALL [None]
  - HEART RATE INCREASED [None]
  - LIMB DEFORMITY [None]
  - UPPER LIMB FRACTURE [None]
